FAERS Safety Report 9221765 (Version 2)
Quarter: 2013Q3

REPORT INFORMATION
  Report Type: Spontaneous
  Country: DE (occurrence: DE)
  Receive Date: 20130410
  Receipt Date: 20130828
  Transmission Date: 20140515
  Serious: Yes (Hospitalization)
  Sender: FDA-Public Use
  Company Number: DE-JNJFOC-20130403181

PATIENT
  Age: 77 Year
  Sex: Male
  Weight: 82 kg

DRUGS (6)
  1. XARELTO [Suspect]
     Indication: THROMBOSIS
     Route: 048
     Dates: start: 20130202, end: 20130208
  2. XARELTO [Suspect]
     Indication: THROMBOSIS
     Route: 048
     Dates: start: 20130111, end: 20130201
  3. ALLOPURINOL [Concomitant]
     Route: 065
  4. BISOPROLOL [Concomitant]
     Route: 065
  5. DELIX PROTECT [Concomitant]
     Route: 065
  6. DYTIDE H [Concomitant]
     Route: 065

REACTIONS (5)
  - Thrombocytopenia [Recovered/Resolved]
  - General physical health deterioration [Recovered/Resolved]
  - Pyrexia [Recovered/Resolved]
  - Rash [Recovered/Resolved]
  - Blood creatinine increased [Recovered/Resolved]
